FAERS Safety Report 21128515 (Version 1)
Quarter: 2022Q3

REPORT INFORMATION
  Report Type: Spontaneous
  Country: JP (occurrence: JP)
  Receive Date: 20220725
  Receipt Date: 20220725
  Transmission Date: 20221026
  Serious: Yes (Other)
  Sender: FDA-Public Use
  Company Number: JP-NOVARTISPH-NVSJ2020JP014006

PATIENT
  Age: 74 Year
  Sex: Male

DRUGS (4)
  1. BEOVU [Suspect]
     Active Substance: BROLUCIZUMAB-DBLL
     Indication: Neovascular age-related macular degeneration
     Dosage: 6 MG
     Route: 031
     Dates: start: 20200728, end: 20200728
  2. BEOVU [Suspect]
     Active Substance: BROLUCIZUMAB-DBLL
     Dosage: 6 MG
     Route: 031
     Dates: start: 20201001, end: 20201001
  3. BEOVU [Suspect]
     Active Substance: BROLUCIZUMAB-DBLL
     Dosage: 6 MG
     Route: 031
     Dates: start: 20201203, end: 20201203
  4. TALION [Concomitant]
     Indication: Dermatitis
     Dosage: UNK
     Route: 048

REACTIONS (7)
  - Visual acuity reduced transiently [Recovered/Resolved]
  - Intraocular pressure increased [Recovering/Resolving]
  - Corneal oedema [Recovered/Resolved]
  - Vision blurred [Unknown]
  - Borderline glaucoma [Unknown]
  - Vitreous floaters [Recovered/Resolved]
  - Eye inflammation [Recovered/Resolved]

NARRATIVE: CASE EVENT DATE: 20201208
